FAERS Safety Report 4275180-1 (Version None)
Quarter: 2004Q1

REPORT INFORMATION
  Report Type: 
  Country: None (occurrence: None)
  Receive Date: 20040116
  Receipt Date: 20040108
  Transmission Date: 20041129
  Serious: Yes (Death)
  Sender: FDA-Public Use
  Company Number: 2004AP00085

PATIENT
  Age: 0 Day
  Sex: Male
  Weight: 1.12 kg

DRUGS (3)
  1. CANDESARTAN [Suspect]
  2. SALBUTAMOL [Suspect]
  3. BECLOMETHASONE AQUEOUS [Suspect]

REACTIONS (17)
  - ANTEPARTUM HAEMORRHAGE [None]
  - BLADDER AGENESIS [None]
  - COMPLICATIONS OF MATERNAL EXPOSURE TO THERAPEUTIC DRUGS [None]
  - CONGENITAL CARDIOVASCULAR ANOMALY [None]
  - CONGENITAL FOOT MALFORMATION [None]
  - CRANIAL SUTURES WIDENING [None]
  - DRUG EXPOSURE DURING PREGNANCY [None]
  - FOETAL GROWTH RETARDATION [None]
  - HYPOSPADIAS [None]
  - HYPOTENSION [None]
  - JOINT CONTRACTURE [None]
  - KIDNEY MALFORMATION [None]
  - NEONATAL ANURIA [None]
  - PULMONARY CONGESTION [None]
  - RENAL AGENESIS [None]
  - RENAL TUBULAR DISORDER [None]
  - SKULL MALFORMATION [None]
